FAERS Safety Report 9103158 (Version 3)
Quarter: 2013Q1

REPORT INFORMATION
  Report Type: Spontaneous
  Country: BR (occurrence: BR)
  Receive Date: 20130219
  Receipt Date: 20130328
  Transmission Date: 20140127
  Serious: Yes (Other)
  Sender: FDA-Public Use
  Company Number: PHHY2013BR015305

PATIENT
  Sex: Female
  Weight: 42 kg

DRUGS (4)
  1. RITALIN LA [Suspect]
     Indication: ATTENTION DEFICIT/HYPERACTIVITY DISORDER
     Dosage: 2 DF, (10 MG) QD
     Route: 048
     Dates: start: 201111, end: 201201
  2. RITALIN LA [Suspect]
     Dosage: 1 DF, (20 MG) QD
     Route: 048
     Dates: start: 201209
  3. CLUSIVOL [Concomitant]
     Indication: APPETITE DISORDER
  4. OMEPRAZOLE [Concomitant]
     Indication: GASTRITIS
     Dosage: 1 DF, QD
     Route: 048

REACTIONS (4)
  - Weight decreased [Not Recovered/Not Resolved]
  - Decreased appetite [Not Recovered/Not Resolved]
  - Disturbance in attention [Recovered/Resolved]
  - Drug ineffective [Unknown]
